FAERS Safety Report 24349388 (Version 1)
Quarter: 2024Q3

REPORT INFORMATION
  Report Type: Spontaneous
  Country: GB (occurrence: GB)
  Receive Date: 20240923
  Receipt Date: 20240923
  Transmission Date: 20241017
  Serious: Yes (Hospitalization)
  Sender: CELLTRION
  Company Number: GB-BAXTER-2024BAX023964

PATIENT

DRUGS (3)
  1. INFLIXIMAB [Suspect]
     Active Substance: INFLIXIMAB
     Indication: Crohn^s disease
     Dosage: 380 MG, 8 WEEKLY (REMSIMA 1MG BAXTER; ADDITIONAL INFORMATION:DOSAGE1: EXPDT=28-FEB-2027)
     Route: 042
  2. SODIUM CHLORIDE [Suspect]
     Active Substance: SODIUM CHLORIDE
     Indication: Medication dilution
     Dosage: UNSPECIFIED DOSE, 8 WEEKLY (ADDITIONAL INFORMATION:DOSAGE1: EXPDT=31-MAY-2026 )
     Route: 042
  3. WATER [Suspect]
     Active Substance: WATER
     Indication: Medication dilution
     Dosage: UNSPECIFIED DOSE, 8 WEEKLY (ADDITIONAL INFORMATION:DOSAGE1: EXPDT=28-FEB-2027
     Route: 042

REACTIONS (2)
  - Infection [Unknown]
  - General physical health deterioration [Unknown]
